FAERS Safety Report 4341161-2 (Version None)
Quarter: 2004Q2

REPORT INFORMATION
  Report Type: 
  Country: None (occurrence: None)
  Receive Date: 20040419
  Receipt Date: 20040402
  Transmission Date: 20050107
  Serious: Yes (Death)
  Sender: FDA-Public Use
  Company Number: JP-GLAXOSMITHKLINE-B0329373A

PATIENT
  Age: 55 Year
  Sex: Female

DRUGS (2)
  1. PAXIL [Suspect]
     Indication: DEPRESSION
     Dosage: 10MG PER DAY
     Route: 048
     Dates: start: 20040305, end: 20040308
  2. DEPAS [Suspect]
     Indication: DEPRESSION
     Dosage: 1MG PER DAY
     Route: 048
     Dates: start: 20040305, end: 20040308

REACTIONS (1)
  - CEREBRAL HAEMORRHAGE [None]
